FAERS Safety Report 24752562 (Version 2)
Quarter: 2025Q2

REPORT INFORMATION
  Report Type: Report from Study
  Country: CZ (occurrence: CZ)
  Receive Date: 20241219
  Receipt Date: 20250623
  Transmission Date: 20250716
  Serious: Yes (Hospitalization, Other)
  Sender: TAKEDA
  Company Number: CZ-TAKEDA-2022TUS064364

PATIENT
  Age: 63 Year
  Sex: Female

DRUGS (19)
  1. TEDUGLUTIDE [Suspect]
     Active Substance: TEDUGLUTIDE
     Indication: Short-bowel syndrome
     Dosage: 5 MILLIGRAM, QD
     Dates: start: 20200730
  2. TEDUGLUTIDE [Suspect]
     Active Substance: TEDUGLUTIDE
  3. TEDUGLUTIDE [Suspect]
     Active Substance: TEDUGLUTIDE
  4. TEDUGLUTIDE [Suspect]
     Active Substance: TEDUGLUTIDE
  5. IRON\MINERALS\POTASSIUM IOD\SODIUM FLUORIDE\SODIUM MOLYBDATE\SODIUM SE [Concomitant]
     Active Substance: IRON\MINERALS\POTASSIUM IOD\SODIUM FLUORIDE\SODIUM MOLYBDATE\SODIUM SELENITE\ZINC
     Indication: Supplementation therapy
     Dosage: UNK UNK, 2/WEEK
  6. Biopron forte [Concomitant]
     Indication: Probiotic therapy
     Dosage: UNK UNK, BID
  7. LEVOTHYROXINE SODIUM [Concomitant]
     Active Substance: LEVOTHYROXINE SODIUM
     Indication: Thyroid hormone replacement therapy
  8. Neurol [Concomitant]
     Indication: Anxiolytic therapy
     Dosage: 0.25 MILLIGRAM, BID
  9. CITALOPRAM [Concomitant]
     Active Substance: CITALOPRAM
     Indication: Antidepressant therapy
     Dosage: 10 MILLIGRAM, QD
  10. ZOLPIDEM [Concomitant]
     Active Substance: ZOLPIDEM TARTRATE
     Indication: Sleep disorder
     Dosage: 5 MILLIGRAM, QD
  11. CONTROLOC [Concomitant]
     Active Substance: PANTOPRAZOLE SODIUM
     Indication: Ulcer
     Dosage: 40 MILLIGRAM, QD
  12. CALCIUM\CHOLECALCIFEROL [Concomitant]
     Active Substance: CALCIUM\CHOLECALCIFEROL
     Indication: Osteoporosis
     Dosage: 500 MILLIGRAM, QD
  13. PANCRELIPASE [Concomitant]
     Active Substance: PANCRELIPASE
     Indication: Pancreatic failure
     Dosage: UNK UNK, TID
  14. TELMISARTAN [Concomitant]
     Active Substance: TELMISARTAN
     Indication: Hypertension
     Dosage: 60 MILLIGRAM, QD
  15. BROMAZEPAM [Concomitant]
     Active Substance: BROMAZEPAM
     Indication: Anxiolytic therapy
  16. CERNEVIT [Concomitant]
     Active Substance: VITAMINS
     Indication: Vitamin supplementation
     Dosage: UNK UNK, 2/WEEK
  17. Natrium phosphate [Concomitant]
     Indication: Mineral supplementation
  18. Natrium phosphate [Concomitant]
     Dosage: 20 MILLILITER, 4/WEEK
     Dates: start: 2020
  19. Vigantol [Concomitant]
     Indication: Vitamin supplementation
     Dosage: 8 GTT DROPS, QD
     Dates: start: 20230328

REACTIONS (5)
  - Vascular device infection [Recovered/Resolved]
  - COVID-19 [Recovered/Resolved]
  - Urinary tract infection [Recovered/Resolved]
  - Deep vein thrombosis [Not Recovered/Not Resolved]
  - Headache [Not Recovered/Not Resolved]

NARRATIVE: CASE EVENT DATE: 20220601
